FAERS Safety Report 18042774 (Version 5)
Quarter: 2021Q2

REPORT INFORMATION
  Report Type: Spontaneous
  Country: DE (occurrence: DE)
  Receive Date: 20200720
  Receipt Date: 20210624
  Transmission Date: 20210717
  Serious: Yes (Hospitalization, Other)
  Sender: FDA-Public Use
  Company Number: PHHY2017DE199215

PATIENT
  Age: 60 Year
  Sex: Male
  Weight: 90 kg

DRUGS (7)
  1. DOCETAXEL. [Suspect]
     Active Substance: DOCETAXEL
     Indication: LUNG ADENOCARCINOMA
     Dosage: 75 MG
     Route: 042
     Dates: start: 20161024
  2. VARGATEF [Suspect]
     Active Substance: NINTEDANIB
     Dosage: 200 MG,0.5 (200 MG BID)
     Route: 065
     Dates: start: 20191210, end: 20210114
  3. DOCETAXEL. [Suspect]
     Active Substance: DOCETAXEL
     Indication: LUNG ADENOCARCINOMA
     Dosage: 75 MG, QD (DAILY DOSE: 75 MG/M2 BODY SURFACE AREA)
     Route: 065
     Dates: start: 20191209, end: 20200210
  4. VARGATEF [Suspect]
     Active Substance: NINTEDANIB
     Indication: LUNG ADENOCARCINOMA
     Dosage: 200 MG, BID
     Route: 065
     Dates: start: 20161025
  5. DOCETAXEL. [Suspect]
     Active Substance: DOCETAXEL
     Dosage: 75 UNK,QD
     Route: 065
     Dates: start: 20191209, end: 20200210
  6. VARGATEF [Suspect]
     Active Substance: NINTEDANIB
     Dosage: 200 MG, BID
     Route: 065
     Dates: start: 20191210
  7. VARGATEF [Suspect]
     Active Substance: NINTEDANIB
     Indication: LUNG ADENOCARCINOMA
     Dosage: 400 MG
     Route: 048
     Dates: start: 20161025

REACTIONS (21)
  - Nausea [Recovered/Resolved]
  - Alopecia [Recovered/Resolved]
  - Diarrhoea [Recovered/Resolved]
  - Diarrhoea [Recovered/Resolved]
  - White blood cell count decreased [Recovered/Resolved]
  - White blood cell count decreased [Recovered/Resolved]
  - Peripheral sensory neuropathy [Recovered/Resolved]
  - Peripheral sensory neuropathy [Not Recovered/Not Resolved]
  - Diarrhoea [Recovered/Resolved]
  - Diarrhoea [Recovered/Resolved]
  - White blood cell count decreased [Recovered/Resolved]
  - White blood cell count decreased [Recovered/Resolved]
  - Platelet count increased [Recovered/Resolved]
  - Peripheral sensory neuropathy [Unknown]
  - Cerebrovascular accident [Not Recovered/Not Resolved]
  - Peripheral sensory neuropathy [Recovered/Resolved]
  - Lacrimation increased [Unknown]
  - Platelet count increased [Recovered/Resolved]
  - Decreased appetite [Unknown]
  - Headache [Recovered/Resolved]
  - Diarrhoea [Recovered/Resolved]

NARRATIVE: CASE EVENT DATE: 20161114
